FAERS Safety Report 8188947-4 (Version None)
Quarter: 2012Q1

REPORT INFORMATION
  Report Type: 
  Country: None (occurrence: None)
  Receive Date: 20120306
  Receipt Date: 20120210
  Transmission Date: 20120608
  Serious: Yes (Hospitalization, Other)
  Sender: FDA-Public Use
  Company Number: US-AMGEN-USASP2011007812

PATIENT
  Age: 56 Year
  Sex: Male
  Weight: 96 kg

DRUGS (29)
  1. NEULASTA [Suspect]
     Indication: ANAEMIA
     Dosage: 1 UNK, UNK
     Dates: start: 20090720
  2. ARTHROTEC [Concomitant]
     Dosage: 75 MG, BID
  3. LIPITOR [Concomitant]
     Indication: HYPERLIPIDAEMIA
     Dosage: 80 MG, QD
     Route: 048
  4. NEURONTIN [Concomitant]
     Dosage: 100 MG, UNK
  5. ASPIRIN [Concomitant]
     Dosage: 182 MG, QD
     Route: 048
  6. ENBREL [Suspect]
     Indication: ANKYLOSING SPONDYLITIS
     Dosage: 50 MG, QWK
     Dates: start: 20030801, end: 20090301
  7. ASPIRIN [Concomitant]
     Dosage: 81 MG, QD
  8. POTASSIUM PHOSPHATES [Concomitant]
     Indication: RICKETS
     Dosage: 2500 MG, Q12H
     Route: 048
  9. POTASSIUM PHOSPHATES [Concomitant]
     Dosage: 500 MG, UNK
  10. TOPROL-XL [Concomitant]
     Dosage: 50 MG, PRN
     Route: 048
  11. PRILOSEC [Concomitant]
     Indication: GASTROOESOPHAGEAL REFLUX DISEASE
     Dosage: 40 MG, QD
     Route: 048
  12. DIPHENHYDRAMINE HCL [Concomitant]
     Indication: PREMEDICATION
     Dosage: UNK UNK, ONE TIME DOSE
  13. ARTIFICIAL TEARS                   /00445101/ [Concomitant]
     Dosage: UNK
  14. NITROSTAT [Concomitant]
     Dosage: 1 UNK, Q5MIN
     Route: 060
  15. ARTHROTEC [Concomitant]
     Dosage: 75 MG, QD
  16. FENTANYL [Concomitant]
     Indication: SEDATIVE THERAPY
     Dosage: 75 MUG, UNK
     Dates: start: 20110411, end: 20110411
  17. ENBREL [Suspect]
     Indication: RHEUMATOID ARTHRITIS
  18. PROCRIT [Suspect]
     Dosage: UNK
  19. COUMADIN [Concomitant]
     Dosage: UNK
  20. TRIMOX                             /00086101/ [Concomitant]
     Dosage: UNK
  21. IBUPROFEN [Concomitant]
     Dosage: 600 MG, Q8H
  22. ASPIRIN [Concomitant]
     Indication: PROPHYLAXIS
     Dosage: 3000 MG, Q12H
  23. ARTHROTEC [Concomitant]
     Indication: PAIN
     Dosage: 25 MG, Q12H
  24. POTASSIUM PHOSPHATES [Concomitant]
     Dosage: 3000 MG, BID
  25. LORAZEPAM [Concomitant]
     Indication: PREMEDICATION
     Dosage: 1 MG, ONE TIME DOSE
  26. TOPROL-XL [Concomitant]
     Indication: HYPERTENSION
     Dosage: 50 MG, QD
     Route: 048
     Dates: start: 20081201
  27. VERSED [Concomitant]
     Indication: SEDATIVE THERAPY
     Dosage: 2 MG, UNK
     Dates: start: 20110411, end: 20110411
  28. ZOSTAVAX [Concomitant]
     Dosage: UNK UNK, ONE TIME DOSE
     Dates: start: 20080101, end: 20080101
  29. POTASSIUM PHOSPHATES [Concomitant]
     Dosage: 2000 MG, BID

REACTIONS (46)
  - BONE MARROW FAILURE [None]
  - ANEURYSM [None]
  - GASTROOESOPHAGEAL REFLUX DISEASE [None]
  - MALIGNANT MELANOMA [None]
  - ARRHYTHMIA [None]
  - FALL [None]
  - MOOD SWINGS [None]
  - BACK PAIN [None]
  - DIZZINESS [None]
  - HEART RATE IRREGULAR [None]
  - FATIGUE [None]
  - BRONCHITIS [None]
  - POST PROCEDURAL HAEMORRHAGE [None]
  - HAEMORRHAGE [None]
  - NAUSEA [None]
  - HYPOTENSION [None]
  - PULMONARY EMBOLISM [None]
  - HYPERPARATHYROIDISM TERTIARY [None]
  - PNEUMOTHORAX [None]
  - RADICULITIS [None]
  - COSTOCHONDRITIS [None]
  - PNEUMONIA [None]
  - WEIGHT INCREASED [None]
  - DIARRHOEA [None]
  - ACUTE SINUSITIS [None]
  - ACUTE MYOCARDIAL INFARCTION [None]
  - ANKYLOSING SPONDYLITIS [None]
  - CATARACT [None]
  - MARROW HYPERPLASIA [None]
  - DEAFNESS [None]
  - LABILE HYPERTENSION [None]
  - IMMUNOSUPPRESSION [None]
  - B-CELL LYMPHOMA [None]
  - CATARACT OPERATION COMPLICATION [None]
  - PARAESTHESIA [None]
  - OSTEOPOROSIS [None]
  - STRESS FRACTURE [None]
  - MIGRAINE WITH AURA [None]
  - NOCTURIA [None]
  - ROTATOR CUFF SYNDROME [None]
  - CORONARY ARTERY DISEASE [None]
  - SPINAL LIGAMENT OSSIFICATION [None]
  - CORNEAL SCAR [None]
  - GENERAL PHYSICAL HEALTH DETERIORATION [None]
  - ACCOMMODATION DISORDER [None]
  - ERECTILE DYSFUNCTION [None]
